FAERS Safety Report 9613418 (Version 2)
Quarter: 2013Q4

REPORT INFORMATION
  Report Type: Spontaneous
  Country: US (occurrence: US)
  Receive Date: 20131010
  Receipt Date: 20131028
  Transmission Date: 20140711
  Serious: No
  Sender: FDA-Public Use
  Company Number: US-PFIZER INC-2013290608

PATIENT
  Age: 78 Year
  Sex: Male
  Weight: 94.33 kg

DRUGS (1)
  1. LYRICA [Suspect]
     Indication: PAIN IN EXTREMITY
     Dosage: 25 MG, 2X/DAY
     Route: 048
     Dates: start: 201308, end: 201309

REACTIONS (3)
  - Pruritus [Recovered/Resolved]
  - Local swelling [Recovered/Resolved]
  - Drug ineffective [Unknown]
